FAERS Safety Report 8570043 (Version 2)
Quarter: 2013Q3

REPORT INFORMATION
  Report Type: Spontaneous
  Country: US (occurrence: US)
  Receive Date: 20120518
  Receipt Date: 20130705
  Transmission Date: 20140515
  Serious: Yes (Hospitalization, Other)
  Sender: FDA-Public Use
  Company Number: US-ROCHE-784688

PATIENT
  Sex: Female
  Weight: 88.08 kg

DRUGS (2)
  1. ACCUTANE [Suspect]
     Indication: ACNE
     Route: 065
     Dates: start: 19960509, end: 199609
  2. ORTHO CYCLEN [Concomitant]

REACTIONS (10)
  - Crohn^s disease [Unknown]
  - Small intestinal obstruction [Unknown]
  - Inflammatory bowel disease [Unknown]
  - Irritable bowel syndrome [Unknown]
  - Depression [Unknown]
  - Large intestine polyp [Unknown]
  - Lip blister [Unknown]
  - Skin exfoliation [Unknown]
  - Erythema [Unknown]
  - Photosensitivity reaction [Unknown]
